FAERS Safety Report 20650943 (Version 3)
Quarter: 2022Q2

REPORT INFORMATION
  Report Type: Spontaneous
  Country: CZ (occurrence: CZ)
  Receive Date: 20220329
  Receipt Date: 20220412
  Transmission Date: 20220721
  Serious: Yes (Life-Threatening)
  Sender: FDA-Public Use
  Company Number: CZ-PIRAMAL PHARMA LIMITED-2022-PEL-000114

PATIENT
  Age: 24 Year
  Sex: Female

DRUGS (13)
  1. SEVOFLURANE [Suspect]
     Active Substance: SEVOFLURANE
     Indication: Induction of anaesthesia
     Route: 055
     Dates: start: 201711, end: 201711
  2. PIRITRAMIDE [Suspect]
     Active Substance: PIRITRAMIDE
     Indication: Postoperative analgesia
     Route: 042
     Dates: start: 201711
  3. METAMIZOLE [Suspect]
     Active Substance: METAMIZOLE
     Indication: Analgesic therapy
     Route: 065
     Dates: start: 201711
  4. SUFENTANIL [Suspect]
     Active Substance: SUFENTANIL
     Indication: Induction of anaesthesia
     Route: 065
     Dates: start: 201711, end: 201711
  5. PROPOFOL [Suspect]
     Active Substance: PROPOFOL
     Indication: Induction of anaesthesia
     Route: 065
     Dates: start: 201711, end: 201711
  6. IBUPROFEN [Concomitant]
     Active Substance: IBUPROFEN
     Indication: Product used for unknown indication
     Route: 065
  7. PANTOPRAZOLE [Concomitant]
     Active Substance: PANTOPRAZOLE
     Indication: Product used for unknown indication
     Route: 042
  8. ONDANSETRON HYDROCHLORIDE [Concomitant]
     Active Substance: ONDANSETRON HYDROCHLORIDE
     Indication: Product used for unknown indication
     Route: 042
     Dates: start: 201711
  9. METHYLPREDNISOLONE [Concomitant]
     Active Substance: METHYLPREDNISOLONE
     Indication: Product used for unknown indication
     Route: 042
     Dates: start: 201711
  10. AMINOPHYLLINE [Concomitant]
     Active Substance: AMINOPHYLLINE
     Indication: Product used for unknown indication
     Route: 042
     Dates: start: 201711
  11. SALMETEROL [Concomitant]
     Active Substance: SALMETEROL
     Indication: Asthma
  12. FLUTICASONE [Concomitant]
     Active Substance: FLUTICASONE
     Indication: Asthma
  13. ALBUTEROL [Concomitant]
     Active Substance: ALBUTEROL
     Indication: Asthma

REACTIONS (2)
  - Anaphylactic reaction [Unknown]
  - Asthma [Unknown]

NARRATIVE: CASE EVENT DATE: 20171101
